FAERS Safety Report 19289340 (Version 1)
Quarter: 2021Q2

REPORT INFORMATION
  Report Type: Report from Study
  Country: FR (occurrence: FR)
  Receive Date: 20210521
  Receipt Date: 20210521
  Transmission Date: 20210717
  Serious: Yes (Death, Hospitalization, Other)
  Sender: FDA-Public Use
  Company Number: FR-TAKEDA-FR201802033

PATIENT
  Sex: Female

DRUGS (8)
  1. ACTISKENAN [Concomitant]
     Active Substance: MORPHINE SULFATE
     Indication: ANALGESIC THERAPY
  2. ICATIBANT [Suspect]
     Active Substance: ICATIBANT ACETATE
     Indication: HEREDITARY ANGIOEDEMA
     Route: 065
  3. ICATIBANT [Suspect]
     Active Substance: ICATIBANT ACETATE
     Indication: HEREDITARY ANGIOEDEMA
     Route: 065
  4. LYRICA [Concomitant]
     Active Substance: PREGABALIN
     Indication: SEIZURE PROPHYLAXIS
  5. MINEVA E 20 [Concomitant]
     Indication: CONTRACEPTION
  6. SKENAN [Concomitant]
     Active Substance: MORPHINE SULFATE
     Indication: ANALGESIC THERAPY
  7. XANAX [Concomitant]
     Active Substance: ALPRAZOLAM
     Indication: ANXIOLYTIC THERAPY
  8. INEXIUM [Concomitant]
     Active Substance: ESOMEPRAZOLE
     Indication: ANTACID THERAPY

REACTIONS (2)
  - Angiosarcoma [Fatal]
  - Breast angiosarcoma [Unknown]

NARRATIVE: CASE EVENT DATE: 20130830
